FAERS Safety Report 16141952 (Version 1)
Quarter: 2019Q2

REPORT INFORMATION
  Report Type: Spontaneous
  Country: US (occurrence: US)
  Receive Date: 20190330
  Receipt Date: 20190330
  Transmission Date: 20190711
  Serious: Yes (Other)
  Sender: FDA-Public Use
  Company Number: None

PATIENT
  Age: 52 Year
  Sex: Male
  Weight: 113.4 kg

DRUGS (2)
  1. PURELL [Suspect]
     Active Substance: ALCOHOL
  2. PURELL [Suspect]
     Active Substance: ALCOHOL

REACTIONS (2)
  - Peripheral swelling [None]
  - Allergy to chemicals [None]

NARRATIVE: CASE EVENT DATE: 20190329
